FAERS Safety Report 16780898 (Version 2)
Quarter: 2019Q3

REPORT INFORMATION
  Report Type: Spontaneous
  Country: US (occurrence: US)
  Receive Date: 20190906
  Receipt Date: 20190927
  Transmission Date: 20191005
  Serious: Yes (Other)
  Sender: FDA-Public Use
  Company Number: US-PFIZER INC-2018402291

PATIENT
  Age: 11 Year
  Sex: Male

DRUGS (4)
  1. GENOTROPIN [Suspect]
     Active Substance: SOMATROPIN
     Dosage: 1.4 MG, UNK (1.2 MG ALTERNATING WITH 1.4MG)
     Dates: start: 201809
  2. GENOTROPIN [Suspect]
     Active Substance: SOMATROPIN
     Dosage: 1.4 MG, 1X/DAY(BEFORE BED ON THE BELLY, LEG OR BUTT)
  3. GENOTROPIN [Suspect]
     Active Substance: SOMATROPIN
     Dosage: 1.4 MG, DAILY
     Dates: start: 201809
  4. GENOTROPIN [Suspect]
     Active Substance: SOMATROPIN
     Indication: GROWTH HORMONE DEFICIENCY
     Dosage: 1.2 MG, UNK (1.2 MG ALTERNATING WITH 1.4MG)
     Dates: start: 201809

REACTIONS (7)
  - Pruritus [Recovered/Resolved]
  - Extra dose administered [Unknown]
  - Adenoidal disorder [Recovered/Resolved]
  - Inflammation [Recovered/Resolved]
  - Anxiety [Recovering/Resolving]
  - Drug dose omission by device [Unknown]
  - Device breakage [Unknown]

NARRATIVE: CASE EVENT DATE: 20190829
